FAERS Safety Report 7825762-2 (Version None)
Quarter: 2011Q4

REPORT INFORMATION
  Report Type: 
  Country: None (occurrence: None)
  Receive Date: 20111019
  Receipt Date: 20111013
  Transmission Date: 20120403
  Serious: Yes (Hospitalization)
  Sender: FDA-Public Use
  Company Number: PHHY2011CA90918

PATIENT
  Age: 88 Year
  Sex: Female

DRUGS (7)
  1. ADALAT [Concomitant]
  2. BETA BLOCKING AGENTS [Concomitant]
     Dosage: 50 MG, BID
  3. BETA BLOCKING AGENTS [Concomitant]
     Dosage: 50 MG, QD
  4. LISINOPRIL [Concomitant]
     Dosage: 20 MG, QD
  5. LISINOPRIL [Concomitant]
     Dosage: 20 MG, BID
  6. HYDRALAZINE HCL [Concomitant]
  7. RASILEZ [Suspect]
     Indication: BLOOD PRESSURE
     Dosage: 150 MG, QD
     Route: 048

REACTIONS (1)
  - HEART RATE INCREASED [None]
